FAERS Safety Report 17098792 (Version 3)
Quarter: 2020Q1

REPORT INFORMATION
  Report Type: Report from Study
  Country: ID (occurrence: ID)
  Receive Date: 20191202
  Receipt Date: 20200130
  Transmission Date: 20200409
  Serious: Yes (Hospitalization, Other)
  Sender: FDA-Public Use
  Company Number: ID-BAYER-2019-182722

PATIENT
  Age: 56 Year
  Sex: Male

DRUGS (5)
  1. KETOPROFEN. [Concomitant]
     Active Substance: KETOPROFEN
     Dosage: 100 MG 3X1
  2. NEXAVAR [Suspect]
     Active Substance: SORAFENIB
     Indication: HEPATOCELLULAR CARCINOMA
     Dosage: 200 MG, BID
     Route: 048
     Dates: start: 20190907
  3. RICOVIR [Concomitant]
     Dosage: 1X1
  4. NEXAVAR [Suspect]
     Active Substance: SORAFENIB
     Indication: HEPATOCELLULAR CARCINOMA
     Dosage: DAILY DOSE 400 MG (2X200 MG)
     Route: 048
  5. MEFENAMIC ACID. [Concomitant]
     Active Substance: MEFENAMIC ACID
     Dosage: 3X1

REACTIONS (15)
  - Loss of personal independence in daily activities [None]
  - Hypoaesthesia [Not Recovered/Not Resolved]
  - Diarrhoea [Recovered/Resolved]
  - Pre-existing condition improved [Recovering/Resolving]
  - Skin exfoliation [Recovered/Resolved]
  - Eating disorder [Not Recovered/Not Resolved]
  - Rash [Recovered/Resolved]
  - Blister [Recovered/Resolved]
  - Off label use [None]
  - Weight decreased [Not Recovered/Not Resolved]
  - Nausea [Not Recovered/Not Resolved]
  - Asthenia [Not Recovered/Not Resolved]
  - Dry skin [Recovered/Resolved]
  - Haematochezia [Not Recovered/Not Resolved]
  - Musculoskeletal disorder [None]

NARRATIVE: CASE EVENT DATE: 20191007
